FAERS Safety Report 13068294 (Version 1)
Quarter: 2016Q4

REPORT INFORMATION
  Report Type: Spontaneous
  Country: CH (occurrence: CH)
  Receive Date: 20161228
  Receipt Date: 20161228
  Transmission Date: 20170207
  Serious: Yes (Hospitalization)
  Sender: FDA-Public Use
  Company Number: CH-ASTRAZENECA-2016SF35081

PATIENT
  Age: 29 Year
  Sex: Female

DRUGS (8)
  1. MINALGIN [Suspect]
     Active Substance: METAMIZOLE
     Route: 048
     Dates: start: 20160928, end: 20161030
  2. ESOMEP [Suspect]
     Active Substance: ESOMEPRAZOLE
     Route: 048
     Dates: start: 20160927, end: 20161030
  3. TEGRETOL [Suspect]
     Active Substance: CARBAMAZEPINE
     Indication: TRIGEMINAL NEURALGIA
     Route: 048
     Dates: start: 20161006, end: 20161030
  4. ESOMEP [Suspect]
     Active Substance: ESOMEPRAZOLE
     Route: 048
     Dates: start: 20161108
  5. CO-AMOXI [Suspect]
     Active Substance: AMOXICILLIN\CLAVULANATE POTASSIUM
     Indication: MASTOIDITIS
     Route: 048
     Dates: start: 20160927, end: 20161006
  6. ZALDIAR [Suspect]
     Active Substance: ACETAMINOPHEN\TRAMADOL HYDROCHLORIDE
     Dosage: 1.0DF UNKNOWN
     Route: 048
     Dates: start: 20160927
  7. SIRDALUD [Suspect]
     Active Substance: TIZANIDINE
     Indication: TRIGEMINAL NEURALGIA
     Route: 048
     Dates: start: 20160928, end: 20161030
  8. LYRICA [Suspect]
     Active Substance: PREGABALIN
     Indication: TRIGEMINAL NEURALGIA
     Route: 048
     Dates: start: 20160929, end: 20161006

REACTIONS (4)
  - Vomiting [Recovered/Resolved]
  - Drug reaction with eosinophilia and systemic symptoms [Recovering/Resolving]
  - Human herpesvirus 6 infection [Unknown]
  - Cough [Recovered/Resolved]

NARRATIVE: CASE EVENT DATE: 20161028
